FAERS Safety Report 8773739 (Version 3)
Quarter: 2012Q4

REPORT INFORMATION
  Report Type: 
  Country: CA (occurrence: CA)
  Receive Date: 20120907
  Receipt Date: 20121112
  Transmission Date: 20130627
  Serious: Yes (Other)
  Sender: FDA-Public Use
  Company Number: CA-ALLERGAN-1212127US

PATIENT
  Age: 49 Year
  Sex: Female

DRUGS (5)
  1. RATIO-PREDNISOLONE [Suspect]
     Indication: UVEITIS
     Dosage: 1 Gtt, bid
     Route: 047
     Dates: start: 20120819
  2. RATIO-PREDNISOLONE [Suspect]
     Dosage: 1 Gtt, qid
     Route: 047
     Dates: start: 20120813, end: 20120819
  3. RATIO-PREDNISOLONE [Suspect]
     Dosage: 1 Gtt, q1hr
     Route: 047
     Dates: start: 20120804
  4. HOMATROPINE [Concomitant]
     Indication: DRUG USE FOR UNKNOWN INDICATION
     Dosage: 1 Gtt, bid
     Route: 047
     Dates: start: 20120804, end: 20120813
  5. VOLTAREN [Concomitant]
     Indication: DRUG USE FOR UNKNOWN INDICATION
     Dosage: 1 Gtt, qid
     Route: 047
     Dates: start: 20120824

REACTIONS (7)
  - Uveitis [Unknown]
  - Retinal oedema [Unknown]
  - Iris adhesions [Unknown]
  - Scotoma [Unknown]
  - Vision blurred [Unknown]
  - Off label use [Unknown]
  - Inappropriate schedule of drug administration [Unknown]
